FAERS Safety Report 25055319 (Version 1)
Quarter: 2025Q1

REPORT INFORMATION
  Report Type: Spontaneous
  Country: CN (occurrence: CN)
  Receive Date: 20250308
  Receipt Date: 20250308
  Transmission Date: 20250409
  Serious: Yes (Death, Life-Threatening)
  Sender: ACCORD
  Company Number: CN-MLMSERVICE-20250220-PI421376-00101-1

PATIENT
  Age: 45 Year
  Sex: Male

DRUGS (9)
  1. CISPLATIN [Suspect]
     Active Substance: CISPLATIN
     Indication: Small cell lung cancer extensive stage
     Dosage: DAYS 1-3
     Dates: start: 2023
  2. ETOPOSIDE [Suspect]
     Active Substance: ETOPOSIDE
     Indication: Small cell lung cancer extensive stage
     Dosage: DAYS 1-5
     Dates: start: 2023
  3. POTASSIUM CHLORIDE [Concomitant]
     Active Substance: POTASSIUM CHLORIDE
     Indication: Mineral supplementation
     Dates: start: 2023
  4. CISPLATIN [Suspect]
     Active Substance: CISPLATIN
     Indication: Ectopic ACTH syndrome
     Dosage: DAYS 1-3
     Dates: start: 2023
  5. CISPLATIN [Suspect]
     Active Substance: CISPLATIN
     Indication: Metastases to adrenals
     Dosage: DAYS 1-3
     Dates: start: 2023
  6. CISPLATIN [Suspect]
     Active Substance: CISPLATIN
     Indication: Metastases to liver
     Dosage: DAYS 1-3
     Dates: start: 2023
  7. ETOPOSIDE [Suspect]
     Active Substance: ETOPOSIDE
     Indication: Metastases to adrenals
     Dosage: DAYS 1-5
     Dates: start: 2023
  8. ETOPOSIDE [Suspect]
     Active Substance: ETOPOSIDE
     Indication: Metastases to liver
     Dosage: DAYS 1-5
     Dates: start: 2023
  9. ETOPOSIDE [Suspect]
     Active Substance: ETOPOSIDE
     Indication: Ectopic ACTH syndrome
     Dosage: DAYS 1-5
     Dates: start: 2023

REACTIONS (3)
  - Myelosuppression [Fatal]
  - Infection [Fatal]
  - Respiratory failure [Fatal]

NARRATIVE: CASE EVENT DATE: 20230101
